FAERS Safety Report 7528325-1 (Version None)
Quarter: 2011Q2

REPORT INFORMATION
  Report Type: 
  Country: None (occurrence: None)
  Receive Date: 20110531
  Receipt Date: 20110516
  Transmission Date: 20111010
  Serious: Yes (Death, Hospitalization, Other)
  Sender: FDA-Public Use
  Company Number: 2011MA005967

PATIENT
  Age: 19 Year
  Sex: Female

DRUGS (1)
  1. PROPYLTHIOURACIL TAB [Suspect]
     Indication: HYPERTHYROIDISM

REACTIONS (5)
  - RENAL FAILURE ACUTE [None]
  - LIVER TRANSPLANT [None]
  - BRAIN DEATH [None]
  - ACUTE HEPATIC FAILURE [None]
  - RENAL TUBULAR NECROSIS [None]
